FAERS Safety Report 6660276-7 (Version None)
Quarter: 2010Q1

REPORT INFORMATION
  Report Type: 
  Country: None (occurrence: None)
  Receive Date: 20100331
  Receipt Date: 20100315
  Transmission Date: 20100710
  Serious: No
  Sender: FDA-Public Use
  Company Number: 2009BI041582

PATIENT
  Age: 61 Year
  Sex: Female

DRUGS (1)
  1. TYSABRI [Suspect]
     Indication: MULTIPLE SCLEROSIS
     Route: 042
     Dates: start: 20091110

REACTIONS (10)
  - BALANCE DISORDER [None]
  - BREAST PAIN [None]
  - BURNING SENSATION [None]
  - DYSPHEMIA [None]
  - FEELING HOT [None]
  - HEADACHE [None]
  - PAIN [None]
  - POLLAKIURIA [None]
  - STRESS [None]
  - URINARY TRACT INFECTION [None]
